FAERS Safety Report 9437385 (Version 1)
Quarter: 2013Q3

REPORT INFORMATION
  Report Type: Spontaneous
  Country: US (occurrence: US)
  Receive Date: 20130802
  Receipt Date: 20130802
  Transmission Date: 20140515
  Serious: No
  Sender: FDA-Public Use
  Company Number: US-B.I. PHARMACEUTICALS,INC./RIDGEFIELD-2013-BI-22521BP

PATIENT
  Age: 46 Year
  Sex: Female
  Weight: 76 kg

DRUGS (3)
  1. COMBIVENT [Suspect]
     Indication: SARCOIDOSIS
     Dosage: STRENGTH: 20 MCG / 100 MCG; DAILY DOSE: 80MCG/400MCG
     Route: 055
     Dates: start: 20130715
  2. XANAX [Concomitant]
     Indication: ANXIETY
     Route: 048
  3. PREDNISONE [Concomitant]
     Indication: SARCOIDOSIS
     Dosage: 20 MG
     Route: 048

REACTIONS (1)
  - Off label use [Not Recovered/Not Resolved]
